FAERS Safety Report 9093281 (Version 1)
Quarter: 2013Q1

REPORT INFORMATION
  Report Type: Spontaneous
  Country: US (occurrence: US)
  Receive Date: 20130201
  Receipt Date: 20130201
  Transmission Date: 20140127
  Serious: Yes (Life-Threatening)
  Sender: FDA-Public Use
  Company Number: US-ASTRAZENECA-2013SE06127

PATIENT
  Age: 89 Year
  Sex: Female

DRUGS (3)
  1. BRILINTA [Suspect]
     Indication: ACUTE CORONARY SYNDROME
     Route: 048
  2. ASPIRIN [Concomitant]
  3. LIPITOR [Concomitant]

REACTIONS (1)
  - Ventricular fibrillation [Recovered/Resolved]
